FAERS Safety Report 18699288 (Version 4)
Quarter: 2021Q2

REPORT INFORMATION
  Report Type: Report from Study
  Country: US (occurrence: US)
  Receive Date: 20210105
  Receipt Date: 20210416
  Transmission Date: 20210717
  Serious: No
  Sender: FDA-Public Use
  Company Number: NVSC2021US000922

PATIENT
  Sex: Female

DRUGS (2)
  1. KISQALI [Suspect]
     Active Substance: RIBOCICLIB
     Indication: PRODUCT USED FOR UNKNOWN INDICATION
     Dosage: UNK
     Route: 048
  2. KISQALI [Suspect]
     Active Substance: RIBOCICLIB
     Route: 048

REACTIONS (13)
  - Constipation [Unknown]
  - Inappropriate schedule of product administration [Unknown]
  - Mouth swelling [Unknown]
  - Lip dry [Unknown]
  - Flatulence [Unknown]
  - Asthenia [Unknown]
  - Rash [Unknown]
  - Taste disorder [Unknown]
  - Anxiety [Unknown]
  - Fatigue [Unknown]
  - Cough [Unknown]
  - Nasal dryness [Unknown]
  - Dry mouth [Unknown]
